FAERS Safety Report 4812649-2 (Version None)
Quarter: 2005Q4

REPORT INFORMATION
  Report Type: 
  Country: None (occurrence: None)
  Receive Date: 20051028
  Receipt Date: 20041104
  Transmission Date: 20060501
  Serious: No
  Sender: FDA-Public Use
  Company Number: US-GLAXOSMITHKLINE-A0532691A

PATIENT
  Age: 59 Year

DRUGS (11)
  1. ADVAIR DISKUS 100/50 [Suspect]
     Indication: DRUG USE FOR UNKNOWN INDICATION
     Route: 055
     Dates: start: 20040401
  2. ZETIA [Concomitant]
  3. ACCUPRIL [Concomitant]
  4. TRAMADOL [Concomitant]
  5. ACTOS [Concomitant]
  6. ATENOLOL [Concomitant]
  7. LIPITOR [Concomitant]
  8. GLUCOTIDE [Concomitant]
  9. OMEPRAZOLE [Concomitant]
  10. PAROXETINE HCL [Concomitant]
  11. METFORMIN HCL [Concomitant]

REACTIONS (2)
  - DRUG INEFFECTIVE [None]
  - PHARMACEUTICAL PRODUCT COMPLAINT [None]
